FAERS Safety Report 5945765-2 (Version None)
Quarter: 2008Q4

REPORT INFORMATION
  Report Type: 
  Country: None (occurrence: None)
  Receive Date: 20081106
  Receipt Date: 20081029
  Transmission Date: 20090506
  Serious: Yes (Hospitalization)
  Sender: FDA-Public Use
  Company Number: TAP2008Q00940

PATIENT
  Age: 46 Year
  Sex: Male
  Weight: 95.5 kg

DRUGS (3)
  1. PREVACID [Suspect]
     Indication: GASTROOESOPHAGEAL REFLUX DISEASE
     Dosage: 15 MG (15 MG, 1 IN 1 D), PER ORAL;  30 MG (30 MG, 1 IN 1 D), PER ORAL
     Route: 048
     Dates: start: 20040101, end: 20040101
  2. PREVACID [Suspect]
     Indication: GASTROOESOPHAGEAL REFLUX DISEASE
     Dosage: 15 MG (15 MG, 1 IN 1 D), PER ORAL;  30 MG (30 MG, 1 IN 1 D), PER ORAL
     Route: 048
     Dates: start: 20040101
  3. HYDROCHLOROTHIAZIDE [Concomitant]

REACTIONS (3)
  - BACK INJURY [None]
  - CONDITION AGGRAVATED [None]
  - INTRACRANIAL HYPOTENSION [None]
